FAERS Safety Report 22384775 (Version 1)
Quarter: 2023Q2

REPORT INFORMATION
  Report Type: Spontaneous
  Country: JP (occurrence: JP)
  Receive Date: 20230530
  Receipt Date: 20230530
  Transmission Date: 20230722
  Serious: Yes (Hospitalization)
  Sender: FDA-Public Use
  Company Number: JP-DSJP-DSJ-2023-120764

PATIENT
  Age: 83 Year
  Sex: Female
  Weight: 53.1 kg

DRUGS (1)
  1. EDOXABAN TOSYLATE [Suspect]
     Active Substance: EDOXABAN TOSYLATE
     Indication: Atrial fibrillation
     Dosage: UNK
     Route: 065

REACTIONS (2)
  - Small intestinal haemorrhage [Recovering/Resolving]
  - Lumbar vertebral fracture [Unknown]

NARRATIVE: CASE EVENT DATE: 20220501
